FAERS Safety Report 8204825-6 (Version None)
Quarter: 2012Q1

REPORT INFORMATION
  Report Type: 
  Country: None (occurrence: None)
  Receive Date: 20120313
  Receipt Date: 20120302
  Transmission Date: 20120608
  Serious: Yes (Other)
  Sender: FDA-Public Use
  Company Number: US-JNJFOC-20120302353

PATIENT
  Age: 35 Year
  Sex: Female
  Weight: 62.6 kg

DRUGS (8)
  1. PREDNISONE [Concomitant]
  2. REMICADE [Suspect]
     Indication: PSORIATIC ARTHROPATHY
     Route: 042
     Dates: start: 20090101
  3. REMICADE [Suspect]
     Dosage: TREATMENT WAS SPORADIC PRIOR TO 2009 (UNSPECIFIED).
     Route: 042
     Dates: start: 20060101
  4. TRAMADOL HCL [Concomitant]
  5. NABUMETONE [Concomitant]
  6. REMICADE [Suspect]
     Dosage: TREATMENT WAS SPORADIC PRIOR TO 2009 (UNSPECIFIED).
     Route: 042
     Dates: start: 20060101
  7. IMURAN [Concomitant]
  8. REMICADE [Suspect]
     Indication: RHEUMATOID ARTHRITIS
     Route: 042
     Dates: start: 20090101

REACTIONS (1)
  - BASAL CELL CARCINOMA [None]
